FAERS Safety Report 5093631-X (Version None)
Quarter: 2006Q3

REPORT INFORMATION
  Report Type: 
  Country: None (occurrence: None)
  Receive Date: 20060829
  Receipt Date: 20060814
  Transmission Date: 20061208
  Serious: Yes (Other)
  Sender: FDA-Public Use
  Company Number: 2006S1007630

PATIENT
  Age: 65 Year
  Sex: Male

DRUGS (5)
  1. EXTENDED PHENYTOIN SODIUM [Suspect]
     Indication: GRAND MAL CONVULSION
     Dosage: 100 MG; Q24; PO
     Route: 048
     Dates: start: 20060201
  2. ATORVASTATIN CALCIUM [Concomitant]
  3. IRBESARTAN [Concomitant]
  4. ACETYLSALICYLIC ACID [Concomitant]
  5. GABAPENTIN [Concomitant]

REACTIONS (5)
  - ANTICONVULSANT DRUG LEVEL DECREASED [None]
  - CONDITION AGGRAVATED [None]
  - CONVULSION [None]
  - PHARMACEUTICAL PRODUCT COMPLAINT [None]
  - THERAPEUTIC RESPONSE UNEXPECTED WITH DRUG SUBSTITUTION [None]
